FAERS Safety Report 4336715-3 (Version None)
Quarter: 2004Q1

REPORT INFORMATION
  Report Type: 
  Country: None (occurrence: None)
  Receive Date: 20040329
  Receipt Date: 20040129
  Transmission Date: 20041129
  Serious: No
  Sender: FDA-Public Use
  Company Number: USA040158058

PATIENT
  Age: 50 Year
  Sex: Male
  Weight: 23 kg

DRUGS (1)
  1. STRATTERA [Suspect]
     Dosage: 80 MG/DAY
     Dates: start: 20031226

REACTIONS (3)
  - TESTICULAR PAIN [None]
  - URETHRAL PAIN [None]
  - URINARY RETENTION [None]
